FAERS Safety Report 7434384-7 (Version None)
Quarter: 2011Q2

REPORT INFORMATION
  Report Type: 
  Country: None (occurrence: None)
  Receive Date: 20110425
  Receipt Date: 20110413
  Transmission Date: 20111010
  Serious: Yes (Hospitalization, Other)
  Sender: FDA-Public Use
  Company Number: PHEH2010US03372

PATIENT
  Sex: Female

DRUGS (26)
  1. PHENERGAN [Concomitant]
  2. HUMULIN R [Concomitant]
  3. AVAPRO [Concomitant]
  4. AVANDIA [Concomitant]
  5. IBUPROFEN [Concomitant]
  6. DEXAMETHASONE [Concomitant]
  7. ACETAMINOPHEN [Concomitant]
  8. MAALOX                                  /USA/ [Concomitant]
  9. PREVACID [Concomitant]
  10. NOVOLIN 70/30 [Concomitant]
  11. DILAUDID [Concomitant]
  12. DEPAKOTE [Concomitant]
  13. ASPIRIN [Concomitant]
  14. FLEXERIL [Concomitant]
  15. MIDRIN [Concomitant]
  16. ZELNORM [Suspect]
     Dosage: UNK
     Route: 048
     Dates: start: 20040601
  17. AVALIDE [Concomitant]
  18. ACTOS [Concomitant]
  19. SLOW-MAG [Concomitant]
  20. EFFEXOR [Concomitant]
  21. TOPAMAX [Concomitant]
  22. HUMALOG [Concomitant]
  23. CRESTOR [Concomitant]
  24. LEVAQUIN [Concomitant]
  25. LANTUS [Concomitant]
  26. MILK OF MAGNESIA TAB [Concomitant]

REACTIONS (16)
  - OROPHARYNGEAL PAIN [None]
  - SYNCOPE [None]
  - HYPERGLYCAEMIA [None]
  - MUSCLE STRAIN [None]
  - VIRAL PHARYNGITIS [None]
  - ASTHENIA [None]
  - ROAD TRAFFIC ACCIDENT [None]
  - HYPERHIDROSIS [None]
  - DYSPHAGIA [None]
  - INJURY [None]
  - CHEST PAIN [None]
  - NAUSEA [None]
  - MIGRAINE [None]
  - CONVULSION [None]
  - HEADACHE [None]
  - FEELING HOT [None]
